FAERS Safety Report 12547608 (Version 1)
Quarter: 2016Q3

REPORT INFORMATION
  Report Type: Spontaneous
  Country: US (occurrence: US)
  Receive Date: 20160712
  Receipt Date: 20160712
  Transmission Date: 20161109
  Serious: Yes (Hospitalization, Other)
  Sender: FDA-Public Use
  Company Number: US-SCIEGEN PHARMACEUTICALS INC-2016SCILIT00298

PATIENT
  Age: 47 Year
  Sex: Female

DRUGS (3)
  1. GABAPENTIN TABLETS,USP [Suspect]
     Active Substance: GABAPENTIN
     Indication: PRODUCT USED FOR UNKNOWN INDICATION
     Dosage: 300 MG PER DAY
     Route: 065
  2. BACLOFEN. [Suspect]
     Active Substance: BACLOFEN
     Indication: MYOCLONUS
     Dosage: 5 MG BY MOUTH THREE TIMES DAILY
     Route: 048
  3. BACLOFEN. [Suspect]
     Active Substance: BACLOFEN
     Dosage: 5 MG BY MOUTH THREE TIMES PER DAY
     Route: 048

REACTIONS (5)
  - Hypoventilation [None]
  - Mental status changes [Recovering/Resolving]
  - Respiratory failure [None]
  - Hypertensive crisis [Unknown]
  - Generalised tonic-clonic seizure [None]
